FAERS Safety Report 5199484-3 (Version None)
Quarter: 2006Q4

REPORT INFORMATION
  Report Type: 
  Country: None (occurrence: None)
  Receive Date: 20061229
  Receipt Date: 20061218
  Transmission Date: 20070319
  Serious: Yes (Other)
  Sender: FDA-Public Use
  Company Number: 06-001491

PATIENT
  Age: 56 Year
  Sex: Female
  Weight: 65.8 kg

DRUGS (4)
  1. FEMRING [Suspect]
     Indication: VULVOVAGINAL DRYNESS
     Dosage: 0.05 MG, QD, VAGINAL
     Route: 067
     Dates: start: 20040101
  2. PREMPRO [Concomitant]
  3. VITAMINS [Concomitant]
  4. FOSAMAX [Concomitant]

REACTIONS (3)
  - UTERINE POLYP [None]
  - VAGINAL HAEMORRHAGE [None]
  - VULVOVAGINAL MYCOTIC INFECTION [None]
